FAERS Safety Report 8031078-4 (Version None)
Quarter: 2012Q1

REPORT INFORMATION
  Report Type: 
  Country: None (occurrence: None)
  Receive Date: 20120109
  Receipt Date: 20111228
  Transmission Date: 20120608
  Serious: Yes (Hospitalization, Other)
  Sender: FDA-Public Use
  Company Number: DE-PFIZER INC-2012001956

PATIENT
  Age: 19 Year
  Sex: Male

DRUGS (2)
  1. PANTOPRAZOLE SODIUM [Suspect]
     Dosage: 240 MG, POSSIBLY AT ONCE
     Dates: start: 20111227, end: 20111227
  2. TETRAZEPAM [Suspect]
     Dosage: 1000 MG, UNK
     Dates: start: 20111227, end: 20111227

REACTIONS (4)
  - INTENTIONAL OVERDOSE [None]
  - SUICIDE ATTEMPT [None]
  - TOXICITY TO VARIOUS AGENTS [None]
  - SOMNOLENCE [None]
